FAERS Safety Report 7395811-7 (Version None)
Quarter: 2011Q2

REPORT INFORMATION
  Report Type: 
  Country: None (occurrence: None)
  Receive Date: 20110405
  Receipt Date: 20110329
  Transmission Date: 20111010
  Serious: Yes (Other)
  Sender: FDA-Public Use
  Company Number: US-RB-024843-11

PATIENT
  Age: 27 Year
  Sex: Female

DRUGS (2)
  1. XANAX [Suspect]
     Indication: PRODUCT USED FOR UNKNOWN INDICATION
     Dosage: DOSING INFORMATION IS UNKNOWN
     Route: 065
  2. SUBOXONE [Suspect]
     Indication: PRODUCT USED FOR UNKNOWN INDICATION
     Dosage: DOSING INFORMATION IS UNKNOWN
     Route: 065

REACTIONS (3)
  - LACRIMATION INCREASED [None]
  - LOSS OF CONSCIOUSNESS [None]
  - DYSARTHRIA [None]
